FAERS Safety Report 8169771-5 (Version None)
Quarter: 2012Q1

REPORT INFORMATION
  Report Type: 
  Country: None (occurrence: None)
  Receive Date: 20120228
  Receipt Date: 20120217
  Transmission Date: 20120608
  Serious: Yes (Hospitalization, Other)
  Sender: FDA-Public Use
  Company Number: JP-BRISTOL-MYERS SQUIBB COMPANY-16388134

PATIENT
  Age: 64 Year
  Sex: Female

DRUGS (16)
  1. LANSOPRAZOLE [Concomitant]
  2. AMITRIPTYLINE HCL [Concomitant]
  3. SCOPOLAMINE [Concomitant]
  4. HUMALOG [Concomitant]
     Route: 058
  5. BROTIZOLAM [Concomitant]
  6. BETAMAC [Concomitant]
  7. SENIRAN [Concomitant]
  8. TENORMIN [Concomitant]
     Route: 048
  9. VALTREX [Concomitant]
     Indication: HERPES ZOSTER
     Route: 048
  10. ATENOLOL [Concomitant]
  11. CALBLOCK [Concomitant]
     Route: 048
  12. LOXONIN [Concomitant]
  13. METFORMIN HCL [Suspect]
     Indication: DIABETES MELLITUS
     Route: 048
     Dates: start: 20110624, end: 20120201
  14. HYZAAR [Concomitant]
     Route: 048
  15. LANTUS [Concomitant]
     Route: 058
  16. CEFDINIR [Concomitant]

REACTIONS (3)
  - RENAL FAILURE ACUTE [None]
  - LACTIC ACIDOSIS [None]
  - HERPES ZOSTER [None]
